FAERS Safety Report 4558553-9 (Version None)
Quarter: 2005Q1

REPORT INFORMATION
  Report Type: 
  Country: None (occurrence: None)
  Receive Date: 20050119
  Receipt Date: 20050112
  Transmission Date: 20050727
  Serious: Yes (Hospitalization)
  Sender: FDA-Public Use
  Company Number: 2005-124230-NL

PATIENT
  Age: 38 Year
  Sex: Female

DRUGS (4)
  1. MIRTAZAPINE [Suspect]
     Dosage: ORAL
     Route: 048
     Dates: end: 20040601
  2. PRAZEPAM [Suspect]
     Dosage: ORAL
     Route: 048
  3. ZUCLOPENTHIXOL [Suspect]
     Dosage: ORAL
     Route: 048
  4. FLUMAZENIL [Suspect]
     Dosage: INTRAVENOUS (NOS)
     Route: 042
     Dates: start: 20040627

REACTIONS (8)
  - DRUG EXPOSURE DURING PREGNANCY [None]
  - INTENTIONAL MISUSE [None]
  - LUNG INFECTION [None]
  - PREGNANCY [None]
  - PREMATURE BABY [None]
  - PYREXIA [None]
  - SOMNOLENCE [None]
  - SUICIDE ATTEMPT [None]
